FAERS Safety Report 5890996-3 (Version None)
Quarter: 2008Q3

REPORT INFORMATION
  Report Type: 
  Country: None (occurrence: None)
  Receive Date: 20080922
  Receipt Date: 20080910
  Transmission Date: 20090109
  Serious: Yes (Life-Threatening, Hospitalization)
  Sender: FDA-Public Use
  Company Number: B0536568A

PATIENT
  Age: 69 Year
  Sex: Female

DRUGS (5)
  1. AUGMENTIN '125' [Suspect]
     Indication: ERYSIPELAS
     Route: 048
     Dates: start: 20080822, end: 20080822
  2. ALDACTONE [Concomitant]
     Indication: DRUG USE FOR UNKNOWN INDICATION
     Route: 065
  3. LESCOL [Concomitant]
     Indication: DRUG USE FOR UNKNOWN INDICATION
     Route: 065
  4. PRAZEPAM [Concomitant]
     Indication: DRUG USE FOR UNKNOWN INDICATION
     Route: 065
  5. PROPRANOLOL [Concomitant]
     Indication: DRUG USE FOR UNKNOWN INDICATION
     Route: 065

REACTIONS (17)
  - ANGIOEDEMA [None]
  - BRONCHOSPASM [None]
  - DYSPNOEA [None]
  - ERYTHEMA [None]
  - FACE OEDEMA [None]
  - HAEMOCONCENTRATION [None]
  - HYPERCAPNIA [None]
  - HYPERHIDROSIS [None]
  - HYPERKALAEMIA [None]
  - HYPERPROTEINAEMIA [None]
  - LYMPHOCYTOSIS [None]
  - RALES [None]
  - RASH [None]
  - RENAL FAILURE [None]
  - RESPIRATORY ACIDOSIS [None]
  - RESPIRATORY DISTRESS [None]
  - SUPRACLAVICULAR RETRACTION [None]
